FAERS Safety Report 5400137-4 (Version None)
Quarter: 2007Q3

REPORT INFORMATION
  Report Type: 
  Country: None (occurrence: None)
  Receive Date: 20070730
  Receipt Date: 20070719
  Transmission Date: 20080115
  Serious: Yes (Life-Threatening, Hospitalization)
  Sender: FDA-Public Use
  Company Number: JP-JNJFOC-20070701453

PATIENT
  Sex: Female

DRUGS (10)
  1. RISPERDAL [Suspect]
     Route: 048
  2. RISPERDAL [Suspect]
     Route: 048
  3. RISPERDAL [Suspect]
     Route: 048
  4. RISPERDAL [Suspect]
     Indication: SCHIZOPHRENIA
     Route: 048
  5. RISPERDAL [Suspect]
     Route: 048
  6. BIPERIDIN [Concomitant]
  7. FLUNITRAZEPAM [Concomitant]
  8. CARBAMAZEPINE [Concomitant]
  9. OLANZAPINE [Concomitant]
  10. PROMETHAZINE [Concomitant]

REACTIONS (2)
  - DRUG ERUPTION [None]
  - STEVENS-JOHNSON SYNDROME [None]
